FAERS Safety Report 9708365 (Version 1)
Quarter: 2013Q4

REPORT INFORMATION
  Report Type: Spontaneous
  Country: US (occurrence: None)
  Receive Date: 20131121
  Receipt Date: 20131121
  Transmission Date: 20140711
  Serious: Yes (Hospitalization)
  Sender: FDA-Public Use
  Company Number: 2013AP009738

PATIENT
  Age: 52 Year
  Sex: Female

DRUGS (6)
  1. CARBAMAZEPINE [Suspect]
     Indication: BIPOLAR DISORDER
     Dosage: 700MG OPO
     Route: 048
  2. TRAZODONE [Suspect]
     Route: 048
  3. DIAZEPAM [Suspect]
     Route: 048
  4. ARIPIPRAZOLE [Concomitant]
  5. FLUOXETINE [Concomitant]
  6. ROPINIROLE [Concomitant]

REACTIONS (5)
  - Grand mal convulsion [None]
  - Coma [None]
  - Ventricular arrhythmia [None]
  - Tachycardia [None]
  - Torsade de pointes [None]
